FAERS Safety Report 8019546-2 (Version None)
Quarter: 2012Q1

REPORT INFORMATION
  Report Type: 
  Country: None (occurrence: None)
  Receive Date: 20120103
  Receipt Date: 20111227
  Transmission Date: 20120608
  Serious: Yes (Hospitalization)
  Sender: FDA-Public Use
  Company Number: DE-JNJFOC-20111210955

PATIENT
  Age: 17 Year
  Sex: Female
  Weight: 60.8 kg

DRUGS (4)
  1. TOPIRAMATE [Suspect]
     Indication: EPILEPSY
     Route: 048
     Dates: start: 20060101, end: 20080801
  2. DEKRISTOL [Concomitant]
     Indication: HYPOVITAMINOSIS
     Route: 048
     Dates: start: 20080812
  3. PHENOBARBITAL TAB [Concomitant]
     Indication: EPILEPSY
     Route: 048
  4. CARBAMAZEPINE [Concomitant]
     Indication: EPILEPSY
     Route: 048
     Dates: end: 20080814

REACTIONS (3)
  - COGNITIVE DISORDER [None]
  - WEIGHT DECREASED [None]
  - APHASIA [None]
